FAERS Safety Report 25263647 (Version 1)
Quarter: 2025Q2

REPORT INFORMATION
  Report Type: Spontaneous
  Country: DE (occurrence: DE)
  Receive Date: 20250502
  Receipt Date: 20250502
  Transmission Date: 20250717
  Serious: Yes (Other)
  Sender: AMGEN
  Company Number: DE-KYOWAKIRIN-2023AKK012656

PATIENT

DRUGS (1)
  1. EPOETIN ALFA [Suspect]
     Active Substance: ERYTHROPOIETIN
     Indication: Product used for unknown indication
     Route: 065

REACTIONS (4)
  - Acute coronary syndrome [Unknown]
  - Acute febrile neutrophilic dermatosis [Unknown]
  - Hepatitis [Unknown]
  - Adverse event [Unknown]
